FAERS Safety Report 9467427 (Version 1)
Quarter: 2013Q3

REPORT INFORMATION
  Report Type: Spontaneous
  Country: US (occurrence: None)
  Receive Date: 20130819
  Receipt Date: 20130819
  Transmission Date: 20140515
  Serious: Yes (Disabling)
  Sender: FDA-Public Use
  Company Number: None

PATIENT
  Age: 64 Year
  Sex: Male
  Weight: 74.39 kg

DRUGS (2)
  1. CIPROFLAXICIN [Suspect]
  2. HYTRIN [Concomitant]

REACTIONS (1)
  - Neuralgia [None]
